FAERS Safety Report 7375617-5 (Version None)
Quarter: 2011Q1

REPORT INFORMATION
  Report Type: 
  Country: None (occurrence: None)
  Receive Date: 20110317
  Receipt Date: 20110310
  Transmission Date: 20110831
  Serious: Yes (Hospitalization)
  Sender: FDA-Public Use
  Company Number: 114154

PATIENT
  Age: 76 Year
  Sex: Male

DRUGS (1)
  1. ACETAZOLAMIDE [Suspect]
     Indication: CATARACT OPERATION
     Dosage: 250 MG

REACTIONS (3)
  - CHOROIDAL EFFUSION [None]
  - VISUAL ACUITY REDUCED [None]
  - ANGLE CLOSURE GLAUCOMA [None]
